FAERS Safety Report 23017652 (Version 1)
Quarter: 2023Q4

REPORT INFORMATION
  Report Type: Spontaneous
  Country: US (occurrence: US)
  Receive Date: 20231003
  Receipt Date: 20231003
  Transmission Date: 20240110
  Serious: No
  Sender: FDA-Public Use
  Company Number: US-MORPHOSYS US-2023-MOR004530-US

PATIENT

DRUGS (3)
  1. MONJUVI [Suspect]
     Active Substance: TAFASITAMAB-CXIX
     Indication: Product used for unknown indication
     Dosage: 200 MG POWDER FOR RECONSTITUTION
     Route: 065
     Dates: start: 202110
  2. MONJUVI [Suspect]
     Active Substance: TAFASITAMAB-CXIX
     Dosage: MONOTHERAPY
     Route: 065
  3. LENALIDOMIDE [Suspect]
     Active Substance: LENALIDOMIDE
     Indication: Product used for unknown indication
     Dosage: UNK
     Route: 065
     Dates: start: 202110

REACTIONS (2)
  - Neuropathy peripheral [Recovering/Resolving]
  - White blood cell count decreased [Recovering/Resolving]
